FAERS Safety Report 16455631 (Version 2)
Quarter: 2019Q2

REPORT INFORMATION
  Report Type: Spontaneous
  Country: US (occurrence: US)
  Receive Date: 20190620
  Receipt Date: 20190620
  Transmission Date: 20190711
  Serious: Yes (Death, Hospitalization)
  Sender: FDA-Public Use
  Company Number: US-SERB S.A.S.-2069410

PATIENT
  Age: 84 Year
  Sex: Male

DRUGS (2)
  1. CYANOKIT [Suspect]
     Active Substance: HYDROXOCOBALAMIN
     Indication: CHEMICAL POISONING
     Route: 065
  2. SODUM THIOSULFATE [Concomitant]
     Active Substance: SODIUM THIOSULFATE
     Route: 065

REACTIONS (2)
  - Incorrect dose administered [Fatal]
  - Drug ineffective [Fatal]
